FAERS Safety Report 24076761 (Version 1)
Quarter: 2024Q3

REPORT INFORMATION
  Report Type: Spontaneous
  Country: FR (occurrence: FR)
  Receive Date: 20240711
  Receipt Date: 20240711
  Transmission Date: 20241016
  Serious: Yes (Hospitalization)
  Sender: TEVA
  Company Number: None

PATIENT
  Age: 65 Year
  Sex: Male
  Weight: 67 kg

DRUGS (7)
  1. LANSOPRAZOLE [Suspect]
     Active Substance: LANSOPRAZOLE
     Indication: Product used for unknown indication
     Dosage: DOSAGE TEXT: 30 MILLIGRAM, QD
     Route: 048
     Dates: end: 20230919
  2. CARBAMAZEPINE [Suspect]
     Active Substance: CARBAMAZEPINE
     Indication: Neuralgia
     Dosage: DOSAGE TEXT: 100 MILLIGRAM, QD
     Route: 048
     Dates: start: 202304, end: 20230918
  3. FLUOXETINE [Suspect]
     Active Substance: FLUOXETINE HYDROCHLORIDE
     Indication: Product used for unknown indication
     Dosage: FLUOXETINE BASE
     Route: 048
     Dates: start: 202308, end: 20230918
  4. INFLIXIMAB [Suspect]
     Active Substance: INFLIXIMAB
     Indication: Autoimmune colitis
     Dosage: TIME INTERVAL: TOTAL: INFLIXIMAB ((MAMMAL/HAMSTER/CHO CELLS))
     Route: 042
     Dates: start: 20230821, end: 20230821
  5. LORAZEPAM [Suspect]
     Active Substance: LORAZEPAM
     Indication: Mixed anxiety and depressive disorder
     Dosage: DOSAGE TEXT: 1 MILLIGRAM, QD, SCORED TABLET
     Route: 048
     Dates: start: 202304, end: 20230918
  6. KEYTRUDA [Suspect]
     Active Substance: PEMBROLIZUMAB
     Indication: Squamous cell carcinoma
     Dosage: TIME INTERVAL: CYCLICAL: DOSAGE TEXT: 200 MILLIGRAM
     Route: 042
     Dates: start: 20230414, end: 20230606
  7. CLOMIPRAMINE [Suspect]
     Active Substance: CLOMIPRAMINE
     Indication: Mixed anxiety and depressive disorder
     Dosage: DOSAGE TEXT: 112.5 MILLIGRAM, QD
     Route: 048
     Dates: start: 202308, end: 20230919

REACTIONS (1)
  - Hepatitis [Recovered/Resolved]

NARRATIVE: CASE EVENT DATE: 20230911
